FAERS Safety Report 6272488-5 (Version None)
Quarter: 2009Q3

REPORT INFORMATION
  Report Type: 
  Country: None (occurrence: None)
  Receive Date: 20090717
  Receipt Date: 20090716
  Transmission Date: 20100115
  Serious: No
  Sender: FDA-Public Use
  Company Number: JP-EISAI INC.-E2020-04919-SPO-JP

PATIENT
  Sex: Female

DRUGS (10)
  1. ARICEPT [Suspect]
     Indication: DEMENTIA ALZHEIMER'S TYPE
     Route: 048
  2. AMLODIPINE [Concomitant]
     Route: 048
  3. OLMETEC [Concomitant]
     Route: 048
  4. ASPIRIN [Concomitant]
     Route: 048
  5. RISPERDAL [Concomitant]
     Route: 048
  6. EBRANTIL [Concomitant]
     Route: 048
  7. CINAL [Concomitant]
     Route: 048
  8. JUVELA NICOTINATE [Concomitant]
     Route: 048
  9. FAMOTIDINE [Concomitant]
     Route: 048
  10. ALOSENN [Concomitant]
     Route: 048

REACTIONS (1)
  - SICK SINUS SYNDROME [None]
